FAERS Safety Report 25617852 (Version 1)
Quarter: 2025Q3

REPORT INFORMATION
  Report Type: Spontaneous
  Country: CN (occurrence: CN)
  Receive Date: 20250729
  Receipt Date: 20250729
  Transmission Date: 20251020
  Serious: Yes (Hospitalization, Other)
  Sender: GLAND PHARMA LTD
  Company Number: CN-GLANDPHARMA-CN-2025GLNLIT01633

PATIENT
  Age: 59 Year
  Sex: Female

DRUGS (20)
  1. CARBOPLATIN [Suspect]
     Active Substance: CARBOPLATIN
     Indication: Invasive ductal breast carcinoma
     Route: 065
     Dates: start: 202310
  2. CARBOPLATIN [Suspect]
     Active Substance: CARBOPLATIN
     Indication: Intraductal proliferative breast lesion
     Route: 065
     Dates: start: 202311
  3. CARBOPLATIN [Suspect]
     Active Substance: CARBOPLATIN
     Route: 065
  4. CARBOPLATIN [Suspect]
     Active Substance: CARBOPLATIN
     Route: 065
     Dates: start: 202401
  5. CARBOPLATIN [Suspect]
     Active Substance: CARBOPLATIN
     Route: 065
     Dates: start: 2024
  6. DOCETAXEL [Suspect]
     Active Substance: DOCETAXEL
     Indication: Invasive ductal breast carcinoma
     Route: 065
     Dates: start: 202310
  7. DOCETAXEL [Suspect]
     Active Substance: DOCETAXEL
     Indication: Intraductal proliferative breast lesion
     Route: 065
     Dates: start: 202311
  8. DOCETAXEL [Suspect]
     Active Substance: DOCETAXEL
     Route: 065
  9. DOCETAXEL [Suspect]
     Active Substance: DOCETAXEL
     Route: 065
     Dates: start: 202401
  10. DOCETAXEL [Suspect]
     Active Substance: DOCETAXEL
     Route: 065
     Dates: start: 2024
  11. TRASTUZUMAB [Suspect]
     Active Substance: TRASTUZUMAB
     Indication: Invasive ductal breast carcinoma
     Route: 065
     Dates: start: 202310
  12. TRASTUZUMAB [Suspect]
     Active Substance: TRASTUZUMAB
     Indication: Intraductal proliferative breast lesion
     Route: 065
     Dates: start: 202311
  13. TRASTUZUMAB [Suspect]
     Active Substance: TRASTUZUMAB
     Route: 065
  14. TRASTUZUMAB [Suspect]
     Active Substance: TRASTUZUMAB
     Route: 065
     Dates: start: 202401
  15. TRASTUZUMAB [Suspect]
     Active Substance: TRASTUZUMAB
     Route: 065
  16. PERTUZUMAB [Suspect]
     Active Substance: PERTUZUMAB
     Indication: Invasive ductal breast carcinoma
     Route: 065
     Dates: start: 202310
  17. PERTUZUMAB [Suspect]
     Active Substance: PERTUZUMAB
     Indication: Intraductal proliferative breast lesion
     Route: 065
     Dates: start: 202311
  18. PERTUZUMAB [Suspect]
     Active Substance: PERTUZUMAB
     Route: 065
  19. PERTUZUMAB [Suspect]
     Active Substance: PERTUZUMAB
     Route: 065
     Dates: start: 202401
  20. PERTUZUMAB [Suspect]
     Active Substance: PERTUZUMAB
     Route: 065

REACTIONS (2)
  - Systemic scleroderma [Recovered/Resolved]
  - Product use in unapproved indication [Unknown]
